FAERS Safety Report 12179106 (Version 1)
Quarter: 2016Q1

REPORT INFORMATION
  Report Type: Spontaneous
  Country: US (occurrence: None)
  Receive Date: 20160314
  Receipt Date: 20160314
  Transmission Date: 20160526
  Serious: Yes (Other)
  Sender: FDA-Public Use
  Company Number: None

PATIENT
  Age: 6 Year
  Sex: Female
  Weight: 19.5 kg

DRUGS (2)
  1. TAMIFLU [Suspect]
     Active Substance: OSELTAMIVIR PHOSPHATE
     Indication: INFLUENZA
     Dosage: 45 MG, TWICE DAILY, TAKEN BY MOUTH
     Dates: start: 20160311, end: 20160313
  2. TAMIFLU [Concomitant]
     Active Substance: OSELTAMIVIR PHOSPHATE

REACTIONS (5)
  - Hallucination, visual [None]
  - Euphoric mood [None]
  - Emotional disorder [None]
  - Abnormal behaviour [None]
  - Middle insomnia [None]

NARRATIVE: CASE EVENT DATE: 20160313
